FAERS Safety Report 22921464 (Version 2)
Quarter: 2024Q3

REPORT INFORMATION
  Report Type: Spontaneous
  Country: US (occurrence: None)
  Receive Date: 20230908
  Receipt Date: 20240906
  Transmission Date: 20241017
  Serious: No
  Sender: DOMPE FARMACEUTICI
  Company Number: US-FARMAPROD-202306-1928

PATIENT
  Age: 67 Year
  Sex: Female

DRUGS (11)
  1. OXERVATE [Suspect]
     Active Substance: CENEGERMIN-BKBJ
     Indication: Neurotrophic keratopathy
     Route: 047
     Dates: start: 20230619
  2. OXERVATE [Suspect]
     Active Substance: CENEGERMIN-BKBJ
  3. PREDNISOLONE-NEPAFENAC [Concomitant]
  4. MOXIFLOXACIN [Concomitant]
     Active Substance: MOXIFLOXACIN
  5. VALACYCLOVIR [Concomitant]
     Active Substance: VALACYCLOVIR HYDROCHLORIDE
  6. CLOBETASOL PROPIONATE [Concomitant]
     Active Substance: CLOBETASOL PROPIONATE
  7. CLOBETASOL PROPIONATE [Concomitant]
     Active Substance: CLOBETASOL PROPIONATE
  8. DESONIDE [Concomitant]
     Active Substance: DESONIDE
  9. DESONIDE [Concomitant]
     Active Substance: DESONIDE
  10. XIIDRA [Concomitant]
     Active Substance: LIFITEGRAST
  11. DESONIDE [Concomitant]
     Active Substance: DESONIDE

REACTIONS (12)
  - Product use complaint [Unknown]
  - Wrong technique in product usage process [Unknown]
  - Periorbital pain [Unknown]
  - Ulcerative keratitis [Not Recovered/Not Resolved]
  - Eye pain [Not Recovered/Not Resolved]
  - Dizziness [Unknown]
  - Herpes zoster [Not Recovered/Not Resolved]
  - Rash [Not Recovered/Not Resolved]
  - Pruritus [Not Recovered/Not Resolved]
  - Product dose omission issue [Unknown]
  - Neuralgia [Unknown]
  - Therapy interrupted [Unknown]

NARRATIVE: CASE EVENT DATE: 20230715
